FAERS Safety Report 6545583-0 (Version None)
Quarter: 2010Q1

REPORT INFORMATION
  Report Type: 
  Country: None (occurrence: None)
  Receive Date: 20100121
  Receipt Date: 20100107
  Transmission Date: 20100710
  Serious: Yes (Life-Threatening, Hospitalization, Other)
  Sender: FDA-Public Use
  Company Number: JP-PFIZER INC-2009304295

PATIENT
  Sex: Male
  Weight: 120.2 kg

DRUGS (12)
  1. LIPITOR [Suspect]
     Indication: HYPERLIPIDAEMIA
     Dosage: 20 MG, 1X/DAY
     Route: 048
     Dates: start: 20060706, end: 20091126
  2. GABAPEN [Suspect]
     Indication: HEADACHE
     Dosage: 300 MG, UID/1X/DAY
     Route: 048
     Dates: start: 20090724, end: 20091126
  3. GABAPEN [Suspect]
     Indication: HERNIA PAIN
  4. GABAPEN [Suspect]
     Indication: PAIN
  5. MORPHINE HYDROCHLORIDE [Suspect]
     Indication: ABDOMINAL HERNIA
     Dosage: 800 MG, 1X/DAY (DIVIDED INTO 6 DOSES)
     Route: 048
     Dates: start: 20040901, end: 20091126
  6. MORPHINE HYDROCHLORIDE [Suspect]
     Indication: PAIN
     Dosage: 1400 MG, 1X/DAY
  7. ROHYPNOL [Suspect]
     Indication: INSOMNIA
     Dosage: 4 MG, 1X/DAY
     Dates: start: 20040901
  8. ROHYPNOL [Suspect]
     Dosage: 8 MG, UID/1X/DAY
     Route: 048
     Dates: start: 20070401, end: 20091126
  9. MAGNESIUM OXIDE [Concomitant]
     Indication: ULCER
     Dosage: UNK
     Route: 048
     Dates: start: 20040101, end: 20091126
  10. PURSENNID [Concomitant]
     Indication: DIARRHOEA
     Dosage: UNK
     Route: 048
     Dates: start: 20060112, end: 20091126
  11. VICCILLIN [Concomitant]
     Dosage: UNK
     Dates: start: 20071228, end: 20091126
  12. LASIX [Concomitant]
     Dosage: UNK
     Dates: start: 20041116, end: 20091116

REACTIONS (8)
  - ASTHMA [None]
  - CELLULITIS [None]
  - DUODENAL ULCER [None]
  - FALL [None]
  - LOSS OF CONSCIOUSNESS [None]
  - NEUROLEPTIC MALIGNANT SYNDROME [None]
  - RHABDOMYOLYSIS [None]
  - SOMNOLENCE [None]
